FAERS Safety Report 8520500-2 (Version None)
Quarter: 2012Q3

REPORT INFORMATION
  Report Type: 
  Country: None (occurrence: None)
  Receive Date: 20120719
  Receipt Date: 20120713
  Transmission Date: 20120928
  Serious: Yes (Other)
  Sender: FDA-Public Use
  Company Number: JP-SANOFI-AVENTIS-2012SA049111

PATIENT
  Age: 36 Year
  Sex: Female
  Weight: 59.9 kg

DRUGS (9)
  1. HEPARIN [Suspect]
     Route: 065
     Dates: start: 20100301, end: 20100301
  2. METHYLPREDNISOLONE SODIUM SUCCINATE [Suspect]
     Dosage: STEROID PULSE THERAPY AFTER INTERRUPTION OF PREGNANCY
     Route: 065
     Dates: start: 20100101
  3. METHYLPREDNISOLONE SODIUM SUCCINATE [Suspect]
     Dosage: STEROID PULSE THERAPY
     Route: 065
     Dates: start: 20100301, end: 20100301
  4. PREDNISOLONE [Suspect]
     Route: 048
     Dates: start: 20100301
  5. PREDNISOLONE [Suspect]
     Route: 048
     Dates: start: 20100101
  6. LASIX [Suspect]
     Indication: RENAL DISORDER
     Route: 042
     Dates: start: 20100301
  7. HERBAL PREPARATION [Concomitant]
  8. ALBUMIN (HUMAN) [Concomitant]
  9. I.V. SOLUTIONS [Concomitant]
     Dosage: 500 ML-1000 ML

REACTIONS (3)
  - GASTROINTESTINAL ULCER [None]
  - BLOOD GLUCOSE INCREASED [None]
  - MATERNAL EXPOSURE DURING PREGNANCY [None]
